FAERS Safety Report 8496320-4 (Version None)
Quarter: 2012Q3

REPORT INFORMATION
  Report Type: 
  Country: None (occurrence: None)
  Receive Date: 20120709
  Receipt Date: 20120629
  Transmission Date: 20120928
  Serious: No
  Sender: FDA-Public Use
  Company Number: US-PFIZER INC-2012130284

PATIENT
  Sex: Male

DRUGS (4)
  1. CELEBREX [Suspect]
     Indication: ARTHRALGIA
     Dosage: 200 MG, 1X/DAY
     Route: 048
     Dates: start: 20120518, end: 20120524
  2. CETIRIZINE [Concomitant]
     Indication: RHINITIS ALLERGIC
     Dosage: 10 MG, QHS
  3. LEVOTHYROXINE SODIUM [Concomitant]
     Indication: HYPOTHYROIDISM
     Dosage: 75  MG, QD
  4. FLUTICASONE [Concomitant]
     Indication: RHINITIS ALLERGIC
     Dosage: 2 SPRAYS NOS QD

REACTIONS (2)
  - ARTHRALGIA [None]
  - PAIN IN EXTREMITY [None]
